FAERS Safety Report 24020529 (Version 1)
Quarter: 2024Q2

REPORT INFORMATION
  Report Type: Report from Study
  Country: US (occurrence: US)
  Receive Date: 20240627
  Receipt Date: 20240627
  Transmission Date: 20240716
  Serious: Yes (Hospitalization, Other)
  Sender: FDA-Public Use
  Company Number: US-ABBVIE-5668575

PATIENT
  Age: 62 Year
  Sex: Female

DRUGS (2)
  1. HUMIRA [Suspect]
     Active Substance: ADALIMUMAB
     Indication: Rheumatoid arthritis
     Route: 058
     Dates: start: 20180120
  2. HUMIRA [Suspect]
     Active Substance: ADALIMUMAB
     Route: 058
     Dates: start: 2024

REACTIONS (20)
  - Road traffic accident [Unknown]
  - Rheumatoid arthritis [Not Recovered/Not Resolved]
  - Anaemia [Not Recovered/Not Resolved]
  - Fall [Unknown]
  - Pain [Unknown]
  - Cellulitis [Recovered/Resolved]
  - Insomnia [Unknown]
  - Fall [Recovering/Resolving]
  - Peripheral swelling [Unknown]
  - Movement disorder [Unknown]
  - Localised infection [Recovered/Resolved]
  - Scab [Unknown]
  - Fatigue [Not Recovered/Not Resolved]
  - Depression [Not Recovered/Not Resolved]
  - Cataract [Unknown]
  - Stress [Unknown]
  - Hand fracture [Recovering/Resolving]
  - Fractured coccyx [Recovering/Resolving]
  - Pain [Unknown]
  - Face injury [Unknown]

NARRATIVE: CASE EVENT DATE: 20231101
